FAERS Safety Report 14875312 (Version 3)
Quarter: 2019Q4

REPORT INFORMATION
  Report Type: Spontaneous
  Country: GR (occurrence: GR)
  Receive Date: 20180510
  Receipt Date: 20191126
  Transmission Date: 20200122
  Serious: Yes (Death, Other)
  Sender: FDA-Public Use
  Company Number: GR-ALLERGAN-1825073US

PATIENT
  Sex: Male

DRUGS (4)
  1. VFEND [Suspect]
     Active Substance: VORICONAZOLE
     Dosage: UNK UNK, UNKNOWN
     Route: 048
  2. AMBISOME [Suspect]
     Active Substance: AMPHOTERICIN B
     Indication: BRONCHOPULMONARY ASPERGILLOSIS
     Dosage: UNK UNK, UNKNOWN
     Route: 065
  3. CEFTAZIDIME;AVIBACTAM - BP [Suspect]
     Active Substance: AVIBACTAM SODIUM\CEFTAZIDIME
     Indication: PNEUMONIA KLEBSIELLA
     Dosage: UNK UNK, UNKNOWN
     Route: 042
  4. VFEND [Suspect]
     Active Substance: VORICONAZOLE
     Indication: BRONCHOPULMONARY ASPERGILLOSIS
     Dosage: 300 MG, BID
     Route: 042

REACTIONS (7)
  - Renal impairment [Unknown]
  - Treatment failure [Unknown]
  - Hypoxia [Unknown]
  - Pneumonia klebsiella [Unknown]
  - Hepatic enzyme increased [Unknown]
  - Disease progression [Unknown]
  - Respiratory failure [Fatal]
